FAERS Safety Report 5635993-8 (Version None)
Quarter: 2008Q1

REPORT INFORMATION
  Report Type: 
  Country: None (occurrence: None)
  Receive Date: 20080224
  Receipt Date: 20080218
  Transmission Date: 20080703
  Serious: Yes (Other)
  Sender: FDA-Public Use
  Company Number: PHBS2008BR02378

PATIENT
  Age: 39 Year
  Sex: Female

DRUGS (3)
  1. MELLARIL [Suspect]
     Indication: DEPRESSION
     Dosage: 2 TAB/DAY
     Route: 048
     Dates: end: 20080218
  2. CLONAZEPAM [Suspect]
     Indication: DEPRESSION
     Dosage: 2 TAB/DAY
     Route: 048
     Dates: end: 20080218
  3. ALBUTEROL [Suspect]
     Route: 048
     Dates: end: 20080218

REACTIONS (2)
  - AGITATION [None]
  - SUICIDE ATTEMPT [None]
